FAERS Safety Report 7886763-1 (Version None)
Quarter: 2011Q4

REPORT INFORMATION
  Report Type: 
  Country: None (occurrence: None)
  Receive Date: 20111102
  Receipt Date: 20110711
  Transmission Date: 20120403
  Serious: No
  Sender: FDA-Public Use
  Company Number: US-AMGEN-USASP2011035072

PATIENT
  Sex: Female

DRUGS (1)
  1. ENBREL [Suspect]
     Indication: RHEUMATOID ARTHRITIS
     Dosage: 25 MG, 2 TIMES/WK
     Dates: start: 20031101

REACTIONS (5)
  - ARTHRITIS [None]
  - LOWER RESPIRATORY TRACT INFECTION [None]
  - BRONCHITIS [None]
  - PAIN [None]
  - RASH GENERALISED [None]
